FAERS Safety Report 8079072-1 (Version None)
Quarter: 2012Q1

REPORT INFORMATION
  Report Type: 
  Country: None (occurrence: None)
  Receive Date: 20120128
  Receipt Date: 20110815
  Transmission Date: 20120608
  Serious: No
  Sender: FDA-Public Use
  Company Number: US-ABBOTT-11P-163-0847016-00

PATIENT
  Sex: Female
  Weight: 61.29 kg

DRUGS (2)
  1. HUMIRA [Suspect]
     Indication: PSORIASIS
     Dates: start: 20080101, end: 20101001
  2. HUMIRA [Suspect]
     Indication: PSORIATIC ARTHROPATHY
     Dates: start: 20110401

REACTIONS (8)
  - INCORRECT DOSE ADMINISTERED [None]
  - PSORIASIS [None]
  - DRUG EFFECT DECREASED [None]
  - INJECTION SITE PAIN [None]
  - DYSGRAPHIA [None]
  - GAIT DISTURBANCE [None]
  - PSORIATIC ARTHROPATHY [None]
  - DEVICE MALFUNCTION [None]
